FAERS Safety Report 8877217 (Version 1)
Quarter: 2012Q4

REPORT INFORMATION
  Report Type: 
  Country: US (occurrence: US)
  Receive Date: 20121023
  Receipt Date: 20121023
  Transmission Date: 20130627
  Serious: No
  Sender: FDA-Public Use
  Company Number: US-AMGEN-USASP2012058245

PATIENT
  Age: 47 Year
  Sex: Male
  Weight: 119 kg

DRUGS (3)
  1. ENBREL [Suspect]
     Indication: PSORIATIC ARTHROPATHY
     Dosage: 40 mg every 14days
     Route: 058
     Dates: start: 201107, end: 20120801
  2. CELEBREX [Concomitant]
     Dosage: UNK
  3. METHOTREXATE [Concomitant]
     Dosage: UNK

REACTIONS (1)
  - Rash erythematous [Not Recovered/Not Resolved]
